FAERS Safety Report 6339014-3 (Version None)
Quarter: 2009Q3

REPORT INFORMATION
  Report Type: 
  Country: None (occurrence: None)
  Receive Date: 20090821
  Receipt Date: 20090513
  Transmission Date: 20100115
  Serious: No
  Sender: FDA-Public Use
  Company Number: 8042786

PATIENT
  Age: 38 Year
  Sex: Female
  Weight: 50 kg

DRUGS (3)
  1. CIMZIA [Suspect]
     Indication: CROHN'S DISEASE
     Dosage: 400 MG 1/2W SC
     Route: 058
     Dates: start: 20081016
  2. SLOW-FE [Concomitant]
  3. TIRGON SUPPOSITORY [Concomitant]

REACTIONS (2)
  - CROHN'S DISEASE [None]
  - RASH [None]
